FAERS Safety Report 6739252-1 (Version None)
Quarter: 2010Q2

REPORT INFORMATION
  Report Type: 
  Country: None (occurrence: None)
  Receive Date: 20100521
  Receipt Date: 20100507
  Transmission Date: 20101027
  Serious: Yes (Death)
  Sender: FDA-Public Use
  Company Number: 8053751

PATIENT
  Sex: Female

DRUGS (4)
  1. CERTOLIZUMAB PEGOL [Suspect]
     Dosage: (SUBCUTANEOUS)
     Route: 058
     Dates: start: 20090807, end: 20091001
  2. INFLUENZA VACCINE [Suspect]
     Dosage: (- NR OF DOSES: 1 NASAL)
     Route: 045
  3. PREDNISONE TAB [Suspect]
  4. MESALAMINE [Suspect]

REACTIONS (1)
  - H1N1 INFLUENZA [None]
